FAERS Safety Report 17611318 (Version 4)
Quarter: 2020Q3

REPORT INFORMATION
  Report Type: Spontaneous
  Country: CA (occurrence: CA)
  Receive Date: 20200401
  Receipt Date: 20200907
  Transmission Date: 20201102
  Serious: Yes (Other)
  Sender: FDA-Public Use
  Company Number: CA-JNJFOC-20160614521

PATIENT
  Age: 51 Year
  Sex: Female

DRUGS (17)
  1. SIMPONI [Suspect]
     Active Substance: GOLIMUMAB
     Indication: RHEUMATOID ARTHRITIS
     Route: 058
     Dates: start: 200912, end: 2011
  2. HYDROXYCHLOROQUINE SULFATE. [Suspect]
     Active Substance: HYDROXYCHLOROQUINE SULFATE
     Indication: PRODUCT USED FOR UNKNOWN INDICATION
     Route: 065
  3. PLAQUENIL [Suspect]
     Active Substance: HYDROXYCHLOROQUINE SULFATE
     Indication: PRODUCT USED FOR UNKNOWN INDICATION
     Route: 065
     Dates: start: 1998, end: 2005
  4. SIMPONI [Suspect]
     Active Substance: GOLIMUMAB
  5. METHOTREXATE. [Suspect]
     Active Substance: METHOTREXATE
     Indication: PRODUCT USED FOR UNKNOWN INDICATION
     Route: 065
     Dates: start: 1998, end: 2013
  6. ORENCIA [Suspect]
     Active Substance: ABATACEPT
     Indication: RHEUMATOID ARTHRITIS
     Route: 042
  7. PREVACID [Concomitant]
     Active Substance: LANSOPRAZOLE
     Indication: PRODUCT USED FOR UNKNOWN INDICATION
     Route: 065
  8. ARAVA [Suspect]
     Active Substance: LEFLUNOMIDE
     Indication: PRODUCT USED FOR UNKNOWN INDICATION
     Route: 048
     Dates: start: 2005, end: 2006
  9. ACTEMRA [Suspect]
     Active Substance: TOCILIZUMAB
     Indication: RHEUMATOID ARTHRITIS
     Route: 042
  10. ACTEMRA [Suspect]
     Active Substance: TOCILIZUMAB
     Route: 048
  11. HUMIRA [Suspect]
     Active Substance: ADALIMUMAB
     Indication: PRODUCT USED FOR UNKNOWN INDICATION
     Route: 058
     Dates: start: 2008, end: 2009
  12. RITUXAN [Suspect]
     Active Substance: RITUXIMAB
     Indication: RHEUMATOID ARTHRITIS
     Route: 042
  13. REMICADE [Suspect]
     Active Substance: INFLIXIMAB
     Indication: PRODUCT USED FOR UNKNOWN INDICATION
     Dosage: NDC: 412545
     Route: 042
  14. ENBREL [Suspect]
     Active Substance: ETANERCEPT
     Indication: RHEUMATOID ARTHRITIS
     Route: 058
     Dates: start: 200608, end: 200610
  15. HYDROXYCHLOROQUINE [Suspect]
     Active Substance: HYDROXYCHLOROQUINE
     Indication: PRODUCT USED FOR UNKNOWN INDICATION
     Route: 065
  16. PREDNISONE. [Concomitant]
     Active Substance: PREDNISONE
     Indication: PRODUCT USED FOR UNKNOWN INDICATION
     Route: 065
  17. XELJANZ [Concomitant]
     Active Substance: TOFACITINIB CITRATE
     Indication: RHEUMATOID ARTHRITIS
     Route: 048

REACTIONS (29)
  - Eye haemorrhage [Unknown]
  - Dyspnoea [Unknown]
  - Headache [Unknown]
  - Gastric disorder [Unknown]
  - Liver function test abnormal [Not Recovered/Not Resolved]
  - Bone erosion [Unknown]
  - Rash [Unknown]
  - Intentional product use issue [Unknown]
  - Syncope [Unknown]
  - Arthritis [Unknown]
  - Cough [Unknown]
  - Joint swelling [Unknown]
  - C-reactive protein abnormal [Unknown]
  - Diarrhoea [Unknown]
  - Asthenia [Unknown]
  - Urticaria [Unknown]
  - Liver function test increased [Unknown]
  - Musculoskeletal stiffness [Unknown]
  - Peripheral swelling [Unknown]
  - Abdominal discomfort [Unknown]
  - Infection [Unknown]
  - Drug ineffective [Unknown]
  - Gait disturbance [Unknown]
  - Mouth haemorrhage [Unknown]
  - Gingival bleeding [Unknown]
  - Nausea [Unknown]
  - Loss of personal independence in daily activities [Unknown]
  - Off label use [Not Recovered/Not Resolved]
  - Hereditary angioedema [Not Recovered/Not Resolved]
